FAERS Safety Report 23643232 (Version 1)
Quarter: 2024Q1

REPORT INFORMATION
  Report Type: Spontaneous
  Country: US (occurrence: None)
  Receive Date: 20240315
  Receipt Date: 20240315
  Transmission Date: 20240410
  Serious: Yes (Other)
  Sender: FDA-Public Use
  Company Number: None

PATIENT
  Sex: Female
  Weight: 64.44 kg

DRUGS (10)
  1. REVLIMID [Suspect]
     Active Substance: LENALIDOMIDE
     Indication: Plasma cell myeloma
     Dosage: FREQUENCY : DAILY;?
     Route: 048
     Dates: start: 20231116, end: 20240315
  2. Advair Diskus [Concomitant]
  3. albuterol sulf [Concomitant]
  4. ARMOUR THYROID [Concomitant]
  5. Compazine [Concomitant]
  6. DEXAMETHASONE [Concomitant]
  7. FLUTICASONE FUROATE [Concomitant]
  8. GABAPENTIN [Concomitant]
  9. LORAZEPAM [Concomitant]
  10. ONDANSETRON [Concomitant]

REACTIONS (1)
  - Rash [None]
